FAERS Safety Report 21512988 (Version 1)
Quarter: 2022Q4

REPORT INFORMATION
  Report Type: Spontaneous
  Country: US (occurrence: None)
  Receive Date: 20221026
  Receipt Date: 20221026
  Transmission Date: 20230113
  Serious: No
  Sender: FDA-Public Use
  Company Number: None

PATIENT
  Sex: Male

DRUGS (1)
  1. HUMIRA [Suspect]
     Active Substance: ADALIMUMAB
     Indication: Uveitis
     Dosage: 80MG PEN UNDER THE SKIN ON DAY 1, THEN 40MG PEN ON DAY 8, THEN 40MG EVERY 14 DAYS THEREAFTER?
     Route: 058
     Dates: start: 20220927

REACTIONS (1)
  - Drug ineffective [None]
